FAERS Safety Report 4561162-9 (Version None)
Quarter: 2005Q1

REPORT INFORMATION
  Report Type: 
  Country: None (occurrence: None)
  Receive Date: 20050121
  Receipt Date: 20050106
  Transmission Date: 20050727
  Serious: Yes (Disabling)
  Sender: FDA-Public Use
  Company Number: SUSI-2004-00674

PATIENT
  Age: 69 Year
  Sex: Male
  Weight: 77.1 kg

DRUGS (6)
  1. AGRYLIN [Suspect]
     Indication: PLATELET COUNT INCREASED
     Dosage: SEE IMAGE
     Route: 048
     Dates: start: 20030101
  2. AMLODIPINE BESYLATE [Concomitant]
  3. FUROSEMIDE (FUROSEMIDE) [Concomitant]
  4. NADOLOL [Concomitant]
  5. BUFFERIN  /USA/ (ACETYSALICYLIC ACID, MAGNESIUM CARBONATE, ALUMINIUM G [Concomitant]
  6. HYDROXYUREA [Concomitant]

REACTIONS (5)
  - ANGIOPATHY [None]
  - BLINDNESS UNILATERAL [None]
  - CATARACT [None]
  - RETINAL DISORDER [None]
  - VITRECTOMY [None]
